FAERS Safety Report 5826937-4 (Version None)
Quarter: 2008Q3

REPORT INFORMATION
  Report Type: 
  Country: None (occurrence: None)
  Receive Date: 20080729
  Receipt Date: 20080729
  Transmission Date: 20090109
  Serious: Yes (Hospitalization)
  Sender: FDA-Public Use
  Company Number: None

PATIENT
  Sex: Male

DRUGS (5)
  1. GLEEVEC [Suspect]
     Indication: MIXED OLIGO-ASTROCYTOMA
     Dosage: 500MG PO QD
     Route: 048
     Dates: start: 20070405, end: 20080704
  2. HYDROXYUREA [Suspect]
     Dosage: 500 MG PO BID
     Route: 048
     Dates: start: 20070408, end: 20080704
  3. DILANTIN [Concomitant]
  4. KEPPRA [Concomitant]
  5. DECADRON [Concomitant]

REACTIONS (4)
  - ANTISOCIAL BEHAVIOUR [None]
  - HOMICIDAL IDEATION [None]
  - MOOD ALTERED [None]
  - SUICIDAL IDEATION [None]
